FAERS Safety Report 8428821-9 (Version None)
Quarter: 2012Q2

REPORT INFORMATION
  Report Type: 
  Country: None (occurrence: None)
  Receive Date: 20120604
  Receipt Date: 20120521
  Transmission Date: 20120825
  Serious: Yes (Other)
  Sender: FDA-Public Use
  Company Number: 2012MA006620

PATIENT
  Age: 37 Year
  Sex: Female

DRUGS (1)
  1. MORPHINE SULFATE INJ [Suspect]
     Indication: MUSCULOSKELETAL PAIN
     Dosage: 110 MG, BID

REACTIONS (2)
  - SECONDARY HYPOGONADISM [None]
  - AMENORRHOEA [None]
